FAERS Safety Report 4713353-1 (Version None)
Quarter: 2005Q3

REPORT INFORMATION
  Report Type: 
  Country: None (occurrence: None)
  Receive Date: 20050701
  Receipt Date: 20041213
  Transmission Date: 20060218
  Serious: Yes (Other)
  Sender: FDA-Public Use
  Company Number: US-2004-034399

PATIENT
  Age: 40 Year
  Sex: Female

DRUGS (1)
  1. YASMIN [Suspect]
     Dosage: 1 TAB(S), 1X/DAY, ORAL
     Route: 048

REACTIONS (1)
  - DEEP VEIN THROMBOSIS [None]
